FAERS Safety Report 7211852-4 (Version None)
Quarter: 2011Q1

REPORT INFORMATION
  Report Type: 
  Country: None (occurrence: None)
  Receive Date: 20110106
  Receipt Date: 20101228
  Transmission Date: 20110831
  Serious: Yes (Hospitalization)
  Sender: FDA-Public Use
  Company Number: US-BIOGENIDEC-2010BI028719

PATIENT
  Age: 51 Year
  Sex: Female

DRUGS (1)
  1. TYSABRI [Suspect]
     Indication: MULTIPLE SCLEROSIS
     Route: 042
     Dates: start: 20091006

REACTIONS (8)
  - NEUROPATHY PERIPHERAL [None]
  - POST PROCEDURAL COMPLICATION [None]
  - IMPLANT SITE REACTION [None]
  - PAIN [None]
  - DIABETES MELLITUS [None]
  - BLINDNESS [None]
  - CARDIOVASCULAR DISORDER [None]
  - DECREASED APPETITE [None]
